FAERS Safety Report 12561862 (Version 2)
Quarter: 2016Q3

REPORT INFORMATION
  Report Type: Report from Study
  Country: US (occurrence: US)
  Receive Date: 20160715
  Receipt Date: 20160722
  Transmission Date: 20161109
  Serious: Yes (Hospitalization)
  Sender: FDA-Public Use
  Company Number: US-ACTELION-A-US2016-133506

PATIENT
  Age: 68 Year
  Sex: Female

DRUGS (5)
  1. UPTRAVI [Suspect]
     Active Substance: SELEXIPAG
     Dosage: 400 MCG, BID
     Route: 048
  2. REMODULIN [Concomitant]
     Active Substance: TREPROSTINIL
  3. UPTRAVI [Suspect]
     Active Substance: SELEXIPAG
     Indication: PULMONARY ARTERIAL HYPERTENSION
     Dosage: 200 MCG, BID
     Route: 048
     Dates: start: 20160310
  4. UPTRAVI [Suspect]
     Active Substance: SELEXIPAG
     Dosage: 800 MCG, BID
     Route: 048
  5. OPSUMIT [Suspect]
     Active Substance: MACITENTAN
     Indication: PULMONARY ARTERIAL HYPERTENSION
     Dosage: 10 MG, QD
     Route: 048
     Dates: start: 20150626

REACTIONS (16)
  - Arthralgia [Unknown]
  - Headache [Unknown]
  - Tremor [Unknown]
  - Cough [Unknown]
  - Pain in jaw [Unknown]
  - Myalgia [Unknown]
  - Malaise [Recovering/Resolving]
  - Catheterisation cardiac [Unknown]
  - Dyspnoea [Unknown]
  - Diarrhoea [Unknown]
  - Muscle spasms [Unknown]
  - Fluid retention [Unknown]
  - Cardiac failure congestive [Unknown]
  - Eye pruritus [Unknown]
  - Pruritus [Unknown]
  - Device malfunction [Unknown]
